FAERS Safety Report 4787982-3 (Version None)
Quarter: 2005Q3

REPORT INFORMATION
  Report Type: 
  Country: None (occurrence: None)
  Receive Date: 20050923
  Receipt Date: 20050218
  Transmission Date: 20060218
  Serious: Yes (Life-Threatening, Hospitalization)
  Sender: FDA-Public Use
  Company Number: 05H-163-0291788-00

PATIENT
  Weight: 133 kg

DRUGS (2)
  1. NITROGLYCERIN IN DEXTROSE 5% [Suspect]
     Indication: MEDICATION ERROR
     Dosage: 200 ML, PER HOUR, INTRAVENOUS
     Route: 042
     Dates: start: 20050210, end: 20050210
  2. DOPAMINE [Concomitant]

REACTIONS (2)
  - HYPOTENSION [None]
  - MEDICATION ERROR [None]
